FAERS Safety Report 26101784 (Version 1)
Quarter: 2025Q4

REPORT INFORMATION
  Report Type: Spontaneous
  Country: EU (occurrence: EU)
  Receive Date: 20251128
  Receipt Date: 20251128
  Transmission Date: 20260117
  Serious: No
  Sender: BLUEPRINT MEDICINES
  Company Number: EU-Blueprint Medicines Corporation-2025-AER-02580

PATIENT

DRUGS (2)
  1. AVAPRITINIB [Suspect]
     Active Substance: AVAPRITINIB
     Indication: Gastrointestinal stromal tumour
     Route: 048
  2. AVAPRITINIB [Suspect]
     Active Substance: AVAPRITINIB
     Route: 065

REACTIONS (5)
  - Haemorrhagic diathesis [Recovered/Resolved]
  - Face oedema [Recovered/Resolved]
  - Oedema peripheral [Recovered/Resolved]
  - Eyelid oedema [Recovered/Resolved]
  - Hair colour changes [Recovered/Resolved]
